FAERS Safety Report 17993862 (Version 1)
Quarter: 2020Q3

REPORT INFORMATION
  Report Type: Spontaneous
  Country: US (occurrence: US)
  Receive Date: 20200708
  Receipt Date: 20200708
  Transmission Date: 20201103
  Serious: No
  Sender: FDA-Public Use
  Company Number: US-BAYER-2020-137210

PATIENT
  Age: 75 Year
  Sex: Female

DRUGS (11)
  1. SYNTHROID [Concomitant]
     Active Substance: LEVOTHYROXINE SODIUM
  2. COZAAR [Concomitant]
     Active Substance: LOSARTAN POTASSIUM
  3. NORVASC [Concomitant]
     Active Substance: AMLODIPINE BESYLATE
  4. BREO ELLIPTA [Concomitant]
     Active Substance: FLUTICASONE FUROATE\VILANTEROL TRIFENATATE
  5. TYLENOL [Concomitant]
     Active Substance: ACETAMINOPHEN
  6. LASIX [Concomitant]
     Active Substance: FUROSEMIDE
  7. ASPIRIN (PAIN AND FEVER) [Concomitant]
     Active Substance: ASPIRIN
  8. CLARITIN [Suspect]
     Active Substance: LORATADINE
     Indication: NASOPHARYNGITIS
  9. LIPITOR ORIFARM [Concomitant]
     Active Substance: ATORVASTATIN CALCIUM
  10. ROBITUSSIN 12 HOUR COUGH RELIEF [Concomitant]
     Active Substance: DEXTROMETHORPHAN HYDROBROMIDE
  11. CLARITIN [Suspect]
     Active Substance: LORATADINE
     Indication: ALLERGIC RESPIRATORY SYMPTOM
     Dosage: 2 DF
     Route: 048

REACTIONS (1)
  - Extra dose administered [Unknown]

NARRATIVE: CASE EVENT DATE: 20200707
